FAERS Safety Report 4344856-X (Version None)
Quarter: 2004Q2

REPORT INFORMATION
  Report Type: 
  Country: None (occurrence: None)
  Receive Date: 20040423
  Receipt Date: 20030203
  Transmission Date: 20050107
  Serious: No
  Sender: FDA-Public Use
  Company Number: US-GLAXOSMITHKLINE-A0395151A

PATIENT

DRUGS (2)
  1. ZOFRAN [Suspect]
     Route: 065
  2. CISPLATIN [Concomitant]
     Indication: CHEMOTHERAPY

REACTIONS (1)
  - DRUG INEFFECTIVE [None]
